FAERS Safety Report 7245510-7 (Version None)
Quarter: 2011Q1

REPORT INFORMATION
  Report Type: 
  Country: None (occurrence: None)
  Receive Date: 20110126
  Receipt Date: 20101222
  Transmission Date: 20110831
  Serious: Yes (Death)
  Sender: FDA-Public Use
  Company Number: TR-ASTRAZENECA-2010SE60952

PATIENT
  Age: 90 Year
  Sex: Male
  Weight: 45 kg

DRUGS (1)
  1. BELOC ZOK [Suspect]
     Route: 048

REACTIONS (8)
  - TRICHORRHEXIS [None]
  - FEELING COLD [None]
  - RESPIRATORY DISORDER [None]
  - FATIGUE [None]
  - ECCHYMOSIS [None]
  - SOMNOLENCE [None]
  - DERMATITIS ALLERGIC [None]
  - GAIT DISTURBANCE [None]
